FAERS Safety Report 9359784 (Version 1)
Quarter: 2013Q2

REPORT INFORMATION
  Report Type: Spontaneous
  Country: DK (occurrence: DK)
  Receive Date: 20130621
  Receipt Date: 20130621
  Transmission Date: 20140414
  Serious: Yes (Life-Threatening)
  Sender: FDA-Public Use
  Company Number: DK-AMGEN-DNKSP2012084503

PATIENT
  Age: 68 Year
  Sex: 0
  Weight: 55 kg

DRUGS (1)
  1. PROLIA [Suspect]
     Indication: OSTEOPOROSIS
     Dosage: 60 MG/ML, 1 DOSE, Q6MO
     Dates: start: 20120131, end: 20120801

REACTIONS (2)
  - Respiratory tract infection [Recovering/Resolving]
  - Pneumonia [Recovering/Resolving]
